FAERS Safety Report 6182822-2 (Version None)
Quarter: 2009Q2

REPORT INFORMATION
  Report Type: 
  Country: None (occurrence: None)
  Receive Date: 20090507
  Receipt Date: 20090427
  Transmission Date: 20091009
  Serious: Yes (Other)
  Sender: FDA-Public Use
  Company Number: US-ELI_LILLY_AND_COMPANY-US200904006534

PATIENT
  Age: 51 Year
  Sex: Female

DRUGS (4)
  1. CYMBALTA [Suspect]
     Indication: ANXIETY
     Dosage: 60 MG, UNK
     Dates: start: 20090101
  2. GEODON [Concomitant]
  3. DEPAKOTE [Concomitant]
  4. COGENTIN [Concomitant]

REACTIONS (2)
  - BREAST CANCER [None]
  - HALLUCINATION [None]
